FAERS Safety Report 5583118-X (Version None)
Quarter: 2008Q1

REPORT INFORMATION
  Report Type: 
  Country: None (occurrence: None)
  Receive Date: 20080107
  Receipt Date: 20070327
  Transmission Date: 20080703
  Serious: No
  Sender: FDA-Public Use
  Company Number: A0644846A

PATIENT
  Age: 85 Year
  Sex: Female

DRUGS (3)
  1. TAGAMET [Suspect]
     Indication: DUODENAL ULCER
     Route: 048
     Dates: start: 20070201, end: 20070305
  2. TENORMIN [Concomitant]
  3. HYDROCHLOROTHIAZIDE [Concomitant]

REACTIONS (2)
  - DRUG INEFFECTIVE [None]
  - GASTROINTESTINAL PAIN [None]
